FAERS Safety Report 16161495 (Version 2)
Quarter: 2019Q4

REPORT INFORMATION
  Report Type: Spontaneous
  Country: FR (occurrence: FR)
  Receive Date: 20190405
  Receipt Date: 20191101
  Transmission Date: 20200122
  Serious: Yes (Other)
  Sender: FDA-Public Use
  Company Number: FR-ORION CORPORATION ORION PHARMA-19_00005999

PATIENT
  Age: 63 Year
  Sex: Female
  Weight: 55 kg

DRUGS (2)
  1. NORDIMET [Suspect]
     Active Substance: METHOTREXATE
     Indication: RHEUMATOID ARTHRITIS
     Route: 058
     Dates: start: 20181214
  2. IMETH [Suspect]
     Active Substance: METHOTREXATE SODIUM
     Indication: RHEUMATOID ARTHRITIS
     Route: 048
     Dates: start: 20180927, end: 20181214

REACTIONS (2)
  - Gamma-glutamyltransferase increased [Recovering/Resolving]
  - Hepatocellular injury [Recovered/Resolved]

NARRATIVE: CASE EVENT DATE: 20190109
